FAERS Safety Report 10534224 (Version 2)
Quarter: 2014Q4

REPORT INFORMATION
  Report Type: Report from Study
  Country: TH (occurrence: TH)
  Receive Date: 20141022
  Receipt Date: 20141029
  Transmission Date: 20150529
  Serious: Yes (Death, Other)
  Sender: FDA-Public Use
  Company Number: PHHY2014TH137930

PATIENT
  Age: 14 Year
  Sex: Male

DRUGS (1)
  1. GLIVEC [Suspect]
     Active Substance: IMATINIB MESYLATE
     Indication: CHRONIC MYELOID LEUKAEMIA
     Dosage: 400 MG
     Route: 065

REACTIONS (5)
  - Hepatic enzyme increased [Unknown]
  - Gastrointestinal haemorrhage [Unknown]
  - Pancytopenia [Unknown]
  - Death [Fatal]
  - Pulmonary haemorrhage [Unknown]

NARRATIVE: CASE EVENT DATE: 20141013
